FAERS Safety Report 5284791-6 (Version None)
Quarter: 2007Q2

REPORT INFORMATION
  Report Type: 
  Country: None (occurrence: None)
  Receive Date: 20070403
  Receipt Date: 20070327
  Transmission Date: 20071010
  Serious: Yes (Hospitalization)
  Sender: FDA-Public Use
  Company Number: ES-BRISTOL-MYERS SQUIBB COMPANY-13732839

PATIENT
  Age: 34 Year
  Sex: Male

DRUGS (8)
  1. ETOPOSIDE [Suspect]
     Dates: start: 20061026
  2. CYCLOPHOSPHAMIDE [Suspect]
     Dates: start: 20061026
  3. ADRIAMYCIN PFS [Suspect]
     Dates: start: 20061026
  4. VINCRISTINE [Suspect]
     Dates: start: 20061026
  5. PROCARBAZINE [Suspect]
     Dates: start: 20061026
  6. PREDNISONE [Suspect]
     Dates: start: 20061026
  7. PEGFILGRASTIM [Suspect]
  8. BLEOMYCIN [Suspect]
     Dates: start: 20061026

REACTIONS (4)
  - GRANULOCYTOPENIA [None]
  - LEUKOCYTOSIS [None]
  - LEUKOPENIA [None]
  - PYREXIA [None]
